FAERS Safety Report 24584144 (Version 2)
Quarter: 2024Q4

REPORT INFORMATION
  Report Type: Spontaneous
  Country: JP (occurrence: JP)
  Receive Date: 20241106
  Receipt Date: 20241112
  Transmission Date: 20250114
  Serious: Yes (Hospitalization)
  Sender: MERCK
  Company Number: JP-BAYER-2024A153119

PATIENT
  Age: 40 Year
  Sex: Male
  Weight: 61.5 kg

DRUGS (3)
  1. PEMBROLIZUMAB [Suspect]
     Active Substance: PEMBROLIZUMAB
     Indication: Lung neoplasm malignant
     Dosage: 200 MG, Q3WK
     Route: 042
     Dates: start: 20241017, end: 20241017
  2. CARBOPLATIN [Suspect]
     Active Substance: CARBOPLATIN
     Indication: Lung neoplasm malignant
     Dosage: 551.1 MG, Q3WK
     Route: 042
     Dates: start: 20241017, end: 20241017
  3. PEMETREXED [Suspect]
     Active Substance: PEMETREXED
     Indication: Lung neoplasm malignant
     Dosage: 850 MG, Q3WK
     Route: 042
     Dates: start: 20241017, end: 20241017

REACTIONS (1)
  - Tumour associated fever [Recovering/Resolving]

NARRATIVE: CASE EVENT DATE: 20241025
